FAERS Safety Report 6444774-7 (Version None)
Quarter: 2009Q4

REPORT INFORMATION
  Report Type: 
  Country: None (occurrence: None)
  Receive Date: 20091118
  Receipt Date: 20091109
  Transmission Date: 20100525
  Serious: Yes (Other)
  Sender: FDA-Public Use
  Company Number: B0602725A

PATIENT
  Sex: Male
  Weight: 83.46 kg

DRUGS (5)
  1. PANDEMRIX H1N1 [Suspect]
     Indication: PROPHYLAXIS
     Dosage: 1INJ SINGLE DOSE
     Route: 065
  2. INFLUENZA VACCINE (UNSPECIFIED) [Suspect]
     Indication: PROPHYLAXIS
     Dosage: 1INJ SINGLE DOSE
     Route: 065
  3. ALBUTEROL SULFATE AUTOHALER [Suspect]
     Route: 065
  4. SALMETEROL XINAFOATE [Suspect]
     Route: 065
  5. FLUTICASONE PROPIONATE [Suspect]
     Route: 065

REACTIONS (6)
  - ARTHRALGIA [None]
  - CHEST DISCOMFORT [None]
  - DECREASED APPETITE [None]
  - FORCED EXPIRATORY VOLUME INCREASED [None]
  - HEADACHE [None]
  - LETHARGY [None]
